FAERS Safety Report 5671315-4 (Version None)
Quarter: 2008Q1

REPORT INFORMATION
  Report Type: 
  Country: None (occurrence: None)
  Receive Date: 20080312
  Receipt Date: 20080227
  Transmission Date: 20080703
  Serious: Yes (Hospitalization)
  Sender: FDA-Public Use
  Company Number: B0511044A

PATIENT
  Age: 28 Year
  Sex: Female

DRUGS (4)
  1. BUSULPHAN (FORMULATION UNKNOWN) (GENERIC) (BUSULFAN) [Suspect]
     Indication: BONE MARROW TRANSPLANT
     Dosage: 16 MG/KG / ORAL
     Route: 048
     Dates: start: 20040201
  2. CYCLOPHOSPHAMIDE [Suspect]
     Indication: BONE MARROW TRANSPLANT
     Dosage: 120 MG/KG / INTRAVENOUS
     Route: 042
  3. CYCLOSPORINE [Concomitant]
  4. METHOTREXATE [Concomitant]

REACTIONS (11)
  - ACUTE GRAFT VERSUS HOST DISEASE [None]
  - DRY EYE [None]
  - DYSPAREUNIA [None]
  - HEPATIC FUNCTION ABNORMAL [None]
  - MULTI-ORGAN DISORDER [None]
  - OVARIAN FAILURE [None]
  - STOMATITIS [None]
  - UTERINE HAEMORRHAGE [None]
  - VAGINAL DISORDER [None]
  - VAGINAL OBSTRUCTION [None]
  - VULVOVAGINAL DRYNESS [None]
